FAERS Safety Report 4713080-0 (Version None)
Quarter: 2005Q3

REPORT INFORMATION
  Report Type: 
  Country: None (occurrence: None)
  Receive Date: 20050713
  Receipt Date: 20050630
  Transmission Date: 20060218
  Serious: Yes (Hospitalization)
  Sender: FDA-Public Use
  Company Number: PHRM2005FR02022

PATIENT
  Age: 45 Year
  Sex: Female

DRUGS (5)
  1. ZOMETA [Suspect]
     Indication: METASTASES TO BONE
     Route: 042
  2. GEMZAR [Concomitant]
     Route: 042
  3. CARBOPLATIN [Concomitant]
     Route: 042
  4. MEDROL [Concomitant]
     Dosage: 48 MG/DAY
     Route: 048
  5. RADIOTHERAPY [Concomitant]
     Indication: METASTASES TO CENTRAL NERVOUS SYSTEM

REACTIONS (4)
  - ERYTHEMA [None]
  - FACE OEDEMA [None]
  - HYPERHIDROSIS [None]
  - MALAISE [None]
